FAERS Safety Report 6395747-4 (Version None)
Quarter: 2009Q4

REPORT INFORMATION
  Report Type: 
  Country: None (occurrence: None)
  Receive Date: 20091006
  Receipt Date: 20090921
  Transmission Date: 20100525
  Serious: Yes (Other)
  Sender: FDA-Public Use
  Company Number: 8052790

PATIENT
  Age: 58 Year
  Sex: Female
  Weight: 70.3 kg

DRUGS (10)
  1. CIMZIA [Suspect]
     Indication: CROHN'S DISEASE
     Dosage: 400 MG SC
     Route: 058
     Dates: start: 20090301
  2. PENTASA [Concomitant]
  3. TOPANAX [Concomitant]
  4. METHYLPHENIDATE HCL [Concomitant]
  5. LOPERAMIDE [Concomitant]
  6. LESCOL [Concomitant]
  7. ALPRAZOLAM [Concomitant]
  8. PROMETHAZINE [Concomitant]
  9. GEODON [Concomitant]
  10. TOPIRAMATE [Concomitant]

REACTIONS (8)
  - BIPOLAR DISORDER [None]
  - COMPULSIVE SHOPPING [None]
  - FATIGUE [None]
  - NAUSEA [None]
  - PRESYNCOPE [None]
  - SELF-INJURIOUS IDEATION [None]
  - SUICIDAL BEHAVIOUR [None]
  - TINNITUS [None]
